FAERS Safety Report 15813866 (Version 1)
Quarter: 2019Q1

REPORT INFORMATION
  Report Type: Spontaneous
  Country: US (occurrence: US)
  Receive Date: 20190111
  Receipt Date: 20190111
  Transmission Date: 20190417
  Serious: Yes (Disabling)
  Sender: FDA-Public Use
  Company Number: None

PATIENT
  Age: 41 Year
  Sex: Female
  Weight: 72 kg

DRUGS (1)
  1. CIPROFLOXACIN. [Suspect]
     Active Substance: CIPROFLOXACIN
     Indication: DIVERTICULITIS
     Dosage: ?          QUANTITY:1 CAPSULE(S);?
     Route: 048
     Dates: start: 20190104, end: 20190110

REACTIONS (8)
  - Emotional disorder [None]
  - Insomnia [None]
  - Nausea [None]
  - Dizziness [None]
  - Hypoaesthesia [None]
  - Visual impairment [None]
  - Asthenia [None]
  - Paraesthesia [None]

NARRATIVE: CASE EVENT DATE: 20190109
